FAERS Safety Report 4851848-0 (Version None)
Quarter: 2005Q4

REPORT INFORMATION
  Report Type: 
  Country: None (occurrence: None)
  Receive Date: 20051209
  Receipt Date: 20051202
  Transmission Date: 20060501
  Serious: Yes (Death, Life-Threatening, Hospitalization)
  Sender: FDA-Public Use
  Company Number: 163-20785-05100040

PATIENT
  Age: 69 Year
  Sex: Male
  Weight: 103.4201 kg

DRUGS (24)
  1. THALOMID [Suspect]
     Indication: MULTIPLE MYELOMA
     Dosage: 100 MG HS FOR 3 DAYS ALTERNATING WITH 150 MG HS FOR 3 DAYS, ORAL
     Route: 048
     Dates: start: 20050811, end: 20050901
  2. THALOMID [Suspect]
     Indication: MULTIPLE MYELOMA
     Dosage: 100 MG HS FOR 3 DAYS ALTERNATING WITH 150 MG HS FOR 3 DAYS, ORAL
     Route: 048
     Dates: start: 20050915, end: 20050919
  3. DEXAMETHASONE [Suspect]
     Indication: MULTIPLE MYELOMA
     Dosage: 40 MG, 4 DAYS ON, 4 DAYS OFF, ORAL
     Route: 048
     Dates: start: 20050811, end: 20050830
  4. DEXAMETHASONE [Suspect]
     Indication: MULTIPLE MYELOMA
     Dosage: 40 MG, 4 DAYS ON, 4 DAYS OFF, ORAL
     Route: 048
     Dates: start: 20050915, end: 20050918
  5. HUMULIN-N INSULIN (INSULIN HUMAN INJECTION, ISOPHANE) [Concomitant]
  6. NYSTATIN [Concomitant]
  7. PROTONIX [Concomitant]
  8. ZOMETA [Concomitant]
  9. PLAVIX [Concomitant]
  10. DAPSONE [Concomitant]
  11. ARANESP [Concomitant]
  12. NEUTROPHOS (NEUTRA-PHOS) [Concomitant]
  13. ACYCLOVIR [Concomitant]
  14. BENICAR [Concomitant]
  15. HYDROCHLOROTHIAZIDE [Concomitant]
  16. NORVASC [Concomitant]
  17. NITROGLYCERIN [Concomitant]
  18. WARFAIN (WARFARIN) [Concomitant]
  19. OXYGEN (OXYGEN) [Concomitant]
  20. AVANDIA [Concomitant]
  21. STARLIX [Concomitant]
  22. LOVASTATIN [Concomitant]
  23. ARANESP [Concomitant]
  24. ALLOPURINOL [Concomitant]

REACTIONS (7)
  - ANAEMIA [None]
  - CARDIAC ARREST [None]
  - CARDIAC FAILURE CONGESTIVE [None]
  - DIABETES MELLITUS NON-INSULIN-DEPENDENT [None]
  - METASTASES TO BONE [None]
  - MYOCARDIAL INFARCTION [None]
  - RENAL FAILURE ACUTE [None]
